FAERS Safety Report 4283800-0 (Version None)
Quarter: 2004Q1

REPORT INFORMATION
  Report Type: 
  Country: None (occurrence: None)
  Receive Date: 20040115
  Receipt Date: 20030502
  Transmission Date: 20041129
  Serious: Yes (Hospitalization)
  Sender: FDA-Public Use
  Company Number: NSADSS2003021453

PATIENT
  Age: 72 Year
  Sex: Female

DRUGS (2)
  1. DOXIL [Suspect]
     Indication: OVARIAN CANCER
     Dosage: 87.5 MG, INTRAVENOUS DRIP : 70 MG INTRAVENOUS DRIP
     Route: 041
     Dates: start: 20030218, end: 20030218
  2. DOXIL [Suspect]
     Indication: OVARIAN CANCER
     Dosage: 87.5 MG, INTRAVENOUS DRIP : 70 MG INTRAVENOUS DRIP
     Route: 041
     Dates: start: 20030325, end: 20030325

REACTIONS (5)
  - FALL [None]
  - LEUKOPENIA [None]
  - PALMAR-PLANTAR ERYTHRODYSAESTHESIA SYNDROME [None]
  - PATHOLOGICAL FRACTURE [None]
  - SKIN DISCOLOURATION [None]
